FAERS Safety Report 20096791 (Version 3)
Quarter: 2022Q1

REPORT INFORMATION
  Report Type: Spontaneous
  Country: ES (occurrence: ES)
  Receive Date: 20211122
  Receipt Date: 20220121
  Transmission Date: 20220423
  Serious: Yes (Other)
  Sender: FDA-Public Use
  Company Number: ES-ALIMERA SCIENCES LIMITED-ES-A16013-21-000233

PATIENT
  Sex: Female

DRUGS (1)
  1. ILUVIEN [Suspect]
     Active Substance: FLUOCINOLONE ACETONIDE
     Indication: Product used for unknown indication
     Dosage: 0.25 MICROGRAM, QD - UNKNOWN EYE
     Route: 031
     Dates: start: 20211108, end: 20211108

REACTIONS (3)
  - Hypotony of eye [Unknown]
  - Feeling abnormal [Unknown]
  - Device failure [Unknown]

NARRATIVE: CASE EVENT DATE: 20211108
